FAERS Safety Report 4458997-X (Version None)
Quarter: 2004Q3

REPORT INFORMATION
  Report Type: 
  Country: None (occurrence: None)
  Receive Date: 20040922
  Receipt Date: 20040922
  Transmission Date: 20050211
  Serious: Yes (Hospitalization)
  Sender: FDA-Public Use
  Company Number: None

PATIENT
  Sex: Male

DRUGS (1)
  1. DEPAKOTE [Suspect]
     Indication: CONVULSION
     Dosage: 1625 MG DIVIDED ORAL
     Route: 048
     Dates: start: 20030701, end: 20040622

REACTIONS (1)
  - PANCREATIC DISORDER [None]
